FAERS Safety Report 8140906-3 (Version None)
Quarter: 2012Q1

REPORT INFORMATION
  Report Type: 
  Country: None (occurrence: None)
  Receive Date: 20120216
  Receipt Date: 20120209
  Transmission Date: 20120608
  Serious: Yes (Other)
  Sender: FDA-Public Use
  Company Number: GB-PFIZER INC-2012000130

PATIENT
  Age: 1 Year
  Sex: Male
  Weight: 13 kg

DRUGS (2)
  1. REFACTO [Suspect]
     Indication: FACTOR VIII DEFICIENCY
     Dosage: 500 IU ONCE WEEKLY
     Route: 040
     Dates: start: 20110401, end: 20111109
  2. REFACTO [Suspect]
     Indication: PROPHYLAXIS
     Dosage: 750-1000 IU, 2X/WEEK
     Dates: start: 20111109

REACTIONS (2)
  - HAEMORRHAGE [None]
  - FACTOR VIII INHIBITION [None]
